FAERS Safety Report 14094878 (Version 1)
Quarter: 2017Q4

REPORT INFORMATION
  Report Type: Report from Study
  Country: DK (occurrence: DK)
  Receive Date: 20171016
  Receipt Date: 20171016
  Transmission Date: 20180321
  Serious: Yes (Death, Hospitalization)
  Sender: FDA-Public Use
  Company Number: DK-BAYER-2014-164247

PATIENT
  Age: 58 Year
  Sex: Male
  Weight: 98 kg

DRUGS (44)
  1. PIPERACILLIN AND TAZOBACTAM [Concomitant]
     Active Substance: PIPERACILLIN SODIUM\TAZOBACTAM SODIUM
     Dosage: 12 G DAILY
     Dates: start: 20140314, end: 20140317
  2. ONDANSETRON [Concomitant]
     Active Substance: ONDANSETRON
     Indication: PROPHYLAXIS OF NAUSEA AND VOMITING
     Dosage: 4 MG DAILY
     Dates: start: 20140512
  3. MAGNESIUM [Concomitant]
     Active Substance: MAGNESIUM
     Dosage: 1000MG DAILY
     Dates: start: 20140721, end: 20140723
  4. DIAZEPAM. [Concomitant]
     Active Substance: DIAZEPAM
     Dosage: 10MG DAILY
     Dates: start: 20140513, end: 20140514
  5. DOXORUBICIN [Concomitant]
     Active Substance: DOXORUBICIN
     Indication: HEPATOCELLULAR CARCINOMA
     Dosage: 75 MG
     Dates: start: 20140513
  6. PIPERACILLIN AND TAZOBACTAM [Concomitant]
     Active Substance: PIPERACILLIN SODIUM\TAZOBACTAM SODIUM
     Dosage: 4G DAILY
     Dates: start: 20140721, end: 20140722
  7. MORPHIN [Concomitant]
     Active Substance: MORPHINE
     Indication: PAIN PROPHYLAXIS
     Dosage: 20 MG DAILY
     Dates: start: 20140512, end: 20140720
  8. MORPHIN [Concomitant]
     Active Substance: MORPHINE
     Indication: PAIN PROPHYLAXIS
     Dosage: 20MD DAILY
     Dates: start: 20140312, end: 20140315
  9. ZINC. [Concomitant]
     Active Substance: ZINC
     Dosage: UNK
     Dates: start: 20141009
  10. PREDNISON [Concomitant]
     Active Substance: PREDNISONE
     Dosage: 100MG DAILY
     Dates: start: 20140721, end: 20140722
  11. ONDANSETRON [Concomitant]
     Active Substance: ONDANSETRON
     Indication: PROPHYLAXIS OF NAUSEA AND VOMITING
     Dosage: 16MG DAILY
     Dates: start: 20140411, end: 20140412
  12. MAGNESIUM [Concomitant]
     Active Substance: MAGNESIUM
     Dosage: 1000MG DAILY
     Dates: start: 20140411, end: 20140413
  13. EMPERAL [Concomitant]
     Active Substance: METOCLOPRAMIDE HYDROCHLORIDE
     Indication: PROPHYLAXIS OF NAUSEA AND VOMITING
     Dosage: 30MG DAILY
     Dates: start: 20140411, end: 20140413
  14. DIAZEPAM. [Concomitant]
     Active Substance: DIAZEPAM
     Dosage: 10MG DAILY
     Dates: start: 20140721, end: 20140722
  15. DOXORUBICIN [Concomitant]
     Active Substance: DOXORUBICIN
     Indication: HEPATOCELLULAR CARCINOMA
     Dosage: 75 MG
     Dates: start: 20140312
  16. DOXORUBICIN [Concomitant]
     Active Substance: DOXORUBICIN
     Indication: HEPATOCELLULAR CARCINOMA
     Dosage: 150 MG
     Dates: start: 20140721
  17. ONDANSETRON [Concomitant]
     Active Substance: ONDANSETRON
     Indication: PROPHYLAXIS OF NAUSEA AND VOMITING
     Dosage: 12MG DAILY
     Dates: start: 20140513
  18. EMPERAL [Concomitant]
     Active Substance: METOCLOPRAMIDE HYDROCHLORIDE
     Indication: PROPHYLAXIS OF NAUSEA AND VOMITING
     Dosage: 30MG DAILY
     Dates: start: 20140513, end: 20140515
  19. CENTYL [Concomitant]
     Active Substance: BENDROFLUMETHIAZIDE
     Dosage: 1 TABLET DAILY
  20. PIPERACILLIN AND TAZOBACTAM [Concomitant]
     Active Substance: PIPERACILLIN SODIUM\TAZOBACTAM SODIUM
     Dosage: 4G DAILY
     Dates: start: 20140513, end: 20140514
  21. PARACETAMOL [Concomitant]
     Active Substance: ACETAMINOPHEN
     Indication: PAIN PROPHYLAXIS
     Dosage: 3000MG DAILY
     Dates: start: 20140721, end: 20140725
  22. MORPHIN [Concomitant]
     Active Substance: MORPHINE
     Indication: PAIN PROPHYLAXIS
     Dosage: 30 MG DAILY
     Dates: start: 20140720
  23. ONDANSETRON [Concomitant]
     Active Substance: ONDANSETRON
     Indication: PROPHYLAXIS OF NAUSEA AND VOMITING
     Dosage: 16MG DAILY
     Dates: start: 20140312, end: 20140313
  24. SPIRONOLACTON [Concomitant]
     Active Substance: SPIRONOLACTONE
     Indication: ASCITES
     Dosage: 100 MG DAILY
     Dates: start: 20140829
  25. PARACETAMOL [Concomitant]
     Active Substance: ACETAMINOPHEN
     Indication: PAIN PROPHYLAXIS
     Dosage: 3000MG DAILY
     Dates: start: 20140513, end: 20140517
  26. DIAZEPAM. [Concomitant]
     Active Substance: DIAZEPAM
     Dosage: 10MG DAILY
     Dates: start: 20140411, end: 20140412
  27. DOXORUBICIN [Concomitant]
     Active Substance: DOXORUBICIN
     Indication: HEPATOCELLULAR CARCINOMA
     Dosage: 75 MG
     Dates: start: 20140411
  28. CORODIL (ENALAPRIL MALEATE) [Concomitant]
     Active Substance: ENALAPRIL MALEATE
     Dosage: 20 MG DAILY
  29. PIPERACILLIN AND TAZOBACTAM [Concomitant]
     Active Substance: PIPERACILLIN SODIUM\TAZOBACTAM SODIUM
     Dosage: 4G DAILY
     Dates: start: 20140411, end: 20140412
  30. PARACETAMOL [Concomitant]
     Active Substance: ACETAMINOPHEN
     Indication: PAIN PROPHYLAXIS
     Dosage: 1000MG DAILY
     Dates: start: 20140411, end: 20140414
  31. MORPHIN [Concomitant]
     Active Substance: MORPHINE
     Indication: PAIN PROPHYLAXIS
     Dosage: 10 MG DAILY
     Dates: start: 20140411, end: 20140512
  32. DULCOLAX (BISACODYL) [Concomitant]
     Active Substance: BISACODYL
     Dosage: 5 MG DAILY
     Dates: start: 20140711
  33. ONDANSETRON [Concomitant]
     Active Substance: ONDANSETRON
     Indication: PROPHYLAXIS OF NAUSEA AND VOMITING
     Dosage: 16MG DAILY
     Dates: start: 20140513, end: 20140514
  34. EMPERAL [Concomitant]
     Active Substance: METOCLOPRAMIDE HYDROCHLORIDE
     Indication: PROPHYLAXIS OF NAUSEA AND VOMITING
     Dosage: 30MG DAILY
     Dates: start: 20140311, end: 20140313
  35. PREDNISON [Concomitant]
     Active Substance: PREDNISONE
     Dosage: 100MG DAILY
     Dates: start: 20140411, end: 20140412
  36. PREDNISON [Concomitant]
     Active Substance: PREDNISONE
     Dosage: 100MG DAILY
     Dates: start: 20140513, end: 20140514
  37. DIAZEPAM. [Concomitant]
     Active Substance: DIAZEPAM
     Dosage: 10MG DAILY
     Dates: start: 20140312, end: 20140313
  38. SORAFENIB [Suspect]
     Active Substance: SORAFENIB
     Indication: HEPATOCELLULAR CARCINOMA
     Dosage: DAILY DOSE OF 800 MG
     Dates: start: 20140922, end: 20141020
  39. PARACETAMOL [Concomitant]
     Active Substance: ACETAMINOPHEN
     Indication: PAIN PROPHYLAXIS
     Dosage: 4 G DAILY
     Dates: start: 20140312
  40. ONDANSETRON [Concomitant]
     Active Substance: ONDANSETRON
     Indication: PROPHYLAXIS OF NAUSEA AND VOMITING
     Dosage: 16MG DAILY
     Dates: start: 20140721, end: 20140722
  41. MAGNESIUM [Concomitant]
     Active Substance: MAGNESIUM
     Dosage: UNK
     Dates: start: 20141009
  42. MAGNESIUM [Concomitant]
     Active Substance: MAGNESIUM
     Dosage: 1000MG DAILY
     Dates: start: 20140513, end: 20140515
  43. PREDNISON [Concomitant]
     Active Substance: PREDNISONE
     Dosage: 100MG DAILY
     Dates: start: 20140312, end: 20140313
  44. SODIUM CHLORIDE. [Concomitant]
     Active Substance: SODIUM CHLORIDE
     Dosage: 2000 MG DAILY
     Dates: start: 20141009

REACTIONS (2)
  - Hyponatraemia [Unknown]
  - Hepatic failure [Fatal]

NARRATIVE: CASE EVENT DATE: 20141020
